FAERS Safety Report 14524580 (Version 1)
Quarter: 2018Q1

REPORT INFORMATION
  Report Type: Spontaneous
  Country: GB (occurrence: GB)
  Receive Date: 20180213
  Receipt Date: 20180213
  Transmission Date: 20180509
  Serious: Yes (Disabling, Other)
  Sender: FDA-Public Use
  Company Number: GB-AUROBINDO-AUR-APL-2018-005802

PATIENT
  Age: 89 Year
  Sex: Female
  Weight: 83 kg

DRUGS (5)
  1. ACETYLSALICYLIC ACID [Concomitant]
     Active Substance: ASPIRIN
     Indication: ATRIAL FIBRILLATION
     Dosage: 75 G, DAILY (CUMULATIVE DOSE 43503.125 G )
     Route: 048
     Dates: start: 20160527
  2. CIPROFLOXACIN. [Suspect]
     Active Substance: CIPROFLOXACIN
     Indication: PRODUCT USED FOR UNKNOWN INDICATION
     Dosage: 500 MG, DAILY
     Route: 065
  3. GAVISCON                           /00237601/ [Concomitant]
     Active Substance: ALUMINUM HYDROXIDE\MAGNESIUM CARBONATE
     Indication: HIATUS HERNIA
     Dosage: 10 ML, UNK
     Route: 048
     Dates: start: 20160527
  4. LOSARTAN. [Suspect]
     Active Substance: LOSARTAN
     Indication: LEFT VENTRICULAR FAILURE
     Dosage: 37.5 MG, UNK
     Route: 048
     Dates: start: 20170817
  5. FAMOTIDINE. [Concomitant]
     Active Substance: FAMOTIDINE
     Indication: HIATUS HERNIA
     Dosage: 20 MG, DAILY (CUMULATIVE DOSE 11600.833 MG)
     Route: 048
     Dates: start: 20160527

REACTIONS (4)
  - Drug interaction [Unknown]
  - Orthostatic hypotension [Recovered/Resolved]
  - Malaise [Unknown]
  - Syncope [Unknown]

NARRATIVE: CASE EVENT DATE: 20171228
